FAERS Safety Report 8392534-2 (Version None)
Quarter: 2012Q2

REPORT INFORMATION
  Report Type: 
  Country: None (occurrence: None)
  Receive Date: 20120529
  Receipt Date: 20120517
  Transmission Date: 20120825
  Serious: Yes (Hospitalization, Disabling, Other)
  Sender: FDA-Public Use
  Company Number: US-MERCK-1203USA01076

PATIENT
  Age: 55 Year
  Sex: Female
  Weight: 55 kg

DRUGS (24)
  1. FOSAMAX [Suspect]
     Route: 048
     Dates: start: 20031227, end: 20040316
  2. ALENDRONATE SODIUM [Suspect]
     Route: 048
     Dates: start: 20091101, end: 20100101
  3. CORTICOSTEROIDS (UNSPECIFIED) [Concomitant]
     Route: 065
     Dates: start: 19900101, end: 20030101
  4. MEDROL [Concomitant]
     Indication: RHEUMATOID ARTHRITIS
     Route: 065
  5. FOSAMAX [Suspect]
     Route: 048
     Dates: start: 20031227, end: 20040316
  6. FOSAMAX [Suspect]
     Route: 048
     Dates: start: 20050328, end: 20080129
  7. ARAVA [Concomitant]
     Indication: RHEUMATOID ARTHRITIS
     Route: 048
     Dates: start: 20031201
  8. RALOXIFENE HYDROCHLORIDE [Concomitant]
     Indication: OSTEOPENIA
     Route: 065
     Dates: start: 20020319, end: 20020423
  9. AMLODIPINE [Concomitant]
     Indication: HYPERTENSION
     Route: 065
     Dates: start: 20070601, end: 20110801
  10. FOSAMAX [Suspect]
     Route: 048
     Dates: start: 20050328, end: 20080129
  11. FOSAMAX [Suspect]
     Route: 048
     Dates: start: 20040407, end: 20050307
  12. ALENDRONATE SODIUM [Suspect]
     Route: 048
     Dates: start: 20100201, end: 20100301
  13. METHOTREXATE [Concomitant]
     Indication: RHEUMATOID ARTHRITIS
     Route: 048
     Dates: start: 20040201, end: 20110901
  14. NORVASC [Concomitant]
     Indication: HYPERTENSION
     Route: 048
     Dates: start: 20060101
  15. LEFLUNOMIDE [Concomitant]
     Indication: HYPERTENSION
     Route: 065
     Dates: start: 20060301, end: 20110801
  16. FOSAMAX [Suspect]
     Indication: OSTEOPOROSIS
     Route: 048
     Dates: start: 20020105, end: 20100419
  17. FOSAMAX [Suspect]
     Route: 048
     Dates: start: 20040407, end: 20050307
  18. FOSAMAX [Suspect]
     Route: 048
     Dates: start: 20080201, end: 20080801
  19. ALENDRONATE SODIUM [Suspect]
     Route: 048
     Dates: start: 20100401, end: 20100406
  20. RALOXIFENE HYDROCHLORIDE [Concomitant]
     Indication: OSTEOPOROSIS
     Route: 065
     Dates: start: 20020319, end: 20020423
  21. FOSAMAX [Suspect]
     Indication: OSTEOPENIA
     Route: 048
     Dates: start: 20020105, end: 20100419
  22. ALENDRONATE SODIUM [Suspect]
     Route: 048
     Dates: start: 20080901, end: 20091001
  23. HYDROCHLOROTHIAZIDE [Concomitant]
     Indication: HYPERTENSION
     Route: 048
     Dates: start: 20040101, end: 20110801
  24. LISINOPRIL [Concomitant]
     Indication: HYPERTENSION
     Route: 048
     Dates: start: 20050201, end: 20110801

REACTIONS (30)
  - LOW TURNOVER OSTEOPATHY [None]
  - COUGH [None]
  - MUSCULOSKELETAL DISORDER [None]
  - DYSPEPSIA [None]
  - UTERINE DISORDER [None]
  - CHONDROCALCINOSIS [None]
  - IMPAIRED HEALING [None]
  - MUSCLE STRAIN [None]
  - FRACTURE NONUNION [None]
  - GAIT DISTURBANCE [None]
  - UPPER RESPIRATORY TRACT INFECTION [None]
  - RIB FRACTURE [None]
  - PRURITUS [None]
  - HYPOKALAEMIA [None]
  - DIZZINESS [None]
  - ANAEMIA [None]
  - ELECTROCARDIOGRAM ST-T CHANGE [None]
  - MUSCULOSKELETAL DISCOMFORT [None]
  - MUSCULAR WEAKNESS [None]
  - VULVOVAGINAL DRYNESS [None]
  - FEMUR FRACTURE [None]
  - URGE INCONTINENCE [None]
  - FALL [None]
  - CHEST PAIN [None]
  - PAIN IN EXTREMITY [None]
  - ARTHRALGIA [None]
  - LETHARGY [None]
  - SPINAL OSTEOARTHRITIS [None]
  - FOOT FRACTURE [None]
  - BACK PAIN [None]
